FAERS Safety Report 20422813 (Version 1)
Quarter: 2022Q1

REPORT INFORMATION
  Report Type: Spontaneous
  Country: CZ (occurrence: CZ)
  Receive Date: 20220203
  Receipt Date: 20220203
  Transmission Date: 20220424
  Serious: Yes (Other)
  Sender: FDA-Public Use
  Company Number: CZ-BAYER-2021A251149

PATIENT
  Age: 34 Year
  Sex: Male

DRUGS (2)
  1. XARELTO [Suspect]
     Active Substance: RIVAROXABAN
     Indication: Embolism venous
     Dosage: UNK
     Route: 048
     Dates: start: 201701
  2. XARELTO [Suspect]
     Active Substance: RIVAROXABAN
     Indication: Embolism venous
     Dosage: 10 MG, QD, AFTER COMPLITION OF TREATMENT REGIMEN, FOLLOWS EXTENDEN TREATMENT REGIMEN
     Route: 048
     Dates: end: 202012

REACTIONS (2)
  - Embolism venous [Unknown]
  - Drug ineffective [Unknown]
